FAERS Safety Report 4839919-6 (Version None)
Quarter: 2005Q4

REPORT INFORMATION
  Report Type: 
  Country: None (occurrence: None)
  Receive Date: 20051129
  Receipt Date: 20051123
  Transmission Date: 20060501
  Serious: Yes (Hospitalization)
  Sender: FDA-Public Use
  Company Number: AU-ROCHE-425966

PATIENT
  Age: 38 Year
  Sex: Male

DRUGS (13)
  1. CEFTRIAXONE SODIUM [Suspect]
     Indication: DRUG USE FOR UNKNOWN INDICATION
     Route: 041
     Dates: start: 20030605, end: 20030610
  2. FLOXACILLIN SODIUM [Suspect]
     Indication: DRUG USE FOR UNKNOWN INDICATION
     Route: 041
     Dates: start: 20030513, end: 20030515
  3. RANITIDINE [Suspect]
     Indication: ABDOMINAL PAIN
     Route: 048
     Dates: start: 20030523, end: 20030528
  4. NORMAL SALINE [Concomitant]
     Dosage: REPORTED AS NORMAL SALINE FLUSH.
  5. BENZYLPENICILLIN [Concomitant]
  6. GENTAMICIN [Concomitant]
  7. ACETAMINOPHEN [Concomitant]
  8. COLOXYL WITH SENNA [Concomitant]
  9. OMEPRAZOLE [Concomitant]
  10. METOPROLOL [Concomitant]
     Dosage: REPORTED AS METOPROZOLE.
  11. COVERSYL [Concomitant]
  12. FOLIC ACID/IRON [Concomitant]
     Dosage: REPORTED AS FGF.
  13. ASCORBIC ACID [Concomitant]

REACTIONS (3)
  - HEPATIC FUNCTION ABNORMAL [None]
  - HEPATITIS CHOLESTATIC [None]
  - NIGHT SWEATS [None]
